FAERS Safety Report 4809970-0 (Version None)
Quarter: 2005Q4

REPORT INFORMATION
  Report Type: 
  Country: None (occurrence: None)
  Receive Date: 20051024
  Receipt Date: 20051024
  Transmission Date: 20060501
  Serious: No
  Sender: FDA-Public Use
  Company Number: None

PATIENT
  Age: 56 Year
  Sex: Female
  Weight: 51.7101 kg

DRUGS (1)
  1. HUMIRA  NOT SURE GIVEN EVERY 2 WEEKS    ABBOTT [Suspect]
     Indication: RHEUMATOID ARTHRITIS
     Dosage: NOT SURE BUT NORMAL DOSE    EVERY 2 WEEKS
     Dates: start: 20050801, end: 20051115

REACTIONS (10)
  - IMPAIRED HEALING [None]
  - INJECTION SITE ERYTHEMA [None]
  - INJECTION SITE HAEMORRHAGE [None]
  - INJECTION SITE IRRITATION [None]
  - INJECTION SITE REACTION [None]
  - PHARMACEUTICAL PRODUCT COMPLAINT [None]
  - SCAB [None]
  - STOMATITIS [None]
  - WOUND [None]
  - WOUND INFECTION [None]
